FAERS Safety Report 24862752 (Version 2)
Quarter: 2025Q1

REPORT INFORMATION
  Report Type: Spontaneous
  Country: TR (occurrence: TR)
  Receive Date: 20250120
  Receipt Date: 20250124
  Transmission Date: 20250409
  Serious: Yes (Other)
  Sender: NOVARTIS
  Company Number: TR-002147023-NVSC2025TR007814

PATIENT
  Sex: Male

DRUGS (1)
  1. GLIVEC [Suspect]
     Active Substance: IMATINIB MESYLATE
     Indication: Product used for unknown indication
     Dosage: 400 MG, QD (1 PIECE PER DAY)
     Route: 065
     Dates: start: 2007, end: 2012

REACTIONS (3)
  - Bone marrow transplant rejection [Unknown]
  - Muscle spasms [Unknown]
  - Dyspnoea [Unknown]
